FAERS Safety Report 10510013 (Version 1)
Quarter: 2014Q4

REPORT INFORMATION
  Report Type: Spontaneous
  Country: US (occurrence: None)
  Receive Date: 20141009
  Receipt Date: 20141009
  Transmission Date: 20150528
  Serious: Yes (Other)
  Sender: FDA-Public Use
  Company Number: None

PATIENT
  Age: 38 Year
  Sex: Male
  Weight: 100.7 kg

DRUGS (5)
  1. HALDOL [Suspect]
     Active Substance: HALOPERIDOL
  2. PROLIXIN [Suspect]
     Active Substance: FLUPHENAZINE HYDROCHLORIDE
     Dosage: BY MOUTH OR INJECTION
  3. RISPERDAL [Suspect]
     Active Substance: RISPERIDONE
  4. OLANZAPINE. [Suspect]
     Active Substance: OLANZAPINE
     Dosage: BY MOUTH AND INJECTION
     Route: 048
  5. BENZTROPINE [Suspect]
     Active Substance: BENZTROPINE
     Dosage: BY MOUTH AND  INJECTION

REACTIONS (4)
  - Musculoskeletal stiffness [None]
  - Feeling abnormal [None]
  - Dyspnoea [None]
  - Tinnitus [None]

NARRATIVE: CASE EVENT DATE: 20141001
